FAERS Safety Report 4822694-9 (Version None)
Quarter: 2005Q4

REPORT INFORMATION
  Report Type: 
  Country: None (occurrence: None)
  Receive Date: 20051104
  Receipt Date: 20051027
  Transmission Date: 20060501
  Serious: Yes (Other)
  Sender: FDA-Public Use
  Company Number: 2003022615

PATIENT
  Age: 36 Year
  Sex: Female

DRUGS (2)
  1. ATARAX [Suspect]
     Indication: ANXIETY
     Dosage: 112.5 MG (3 IN 1 D), ORAL; 75 MG
     Route: 048
  2. ATARAX [Suspect]
     Indication: CONDITION AGGRAVATED
     Dosage: 112.5 MG (3 IN 1 D), ORAL; 75 MG
     Route: 048

REACTIONS (2)
  - CAESAREAN SECTION [None]
  - DRUG EXPOSURE DURING PREGNANCY [None]
